FAERS Safety Report 9179686 (Version 1)
Quarter: 2012Q4

REPORT INFORMATION
  Report Type: Report from Study
  Country: BR (occurrence: BR)
  Receive Date: 20121029
  Receipt Date: 20121029
  Transmission Date: 20130627
  Serious: Yes (Other)
  Sender: FDA-Public Use
  Company Number: BR-ROCHE-1148347

PATIENT
  Age: 72 Year
  Sex: Male
  Weight: 69 kg

DRUGS (8)
  1. BEVACIZUMAB [Suspect]
     Indication: COLORECTAL CANCER
     Dosage: 12 infusion
     Route: 042
     Dates: start: 20111003, end: 20120430
  2. IRINOTECAN [Suspect]
     Indication: COLORECTAL CANCER
     Dosage: 12 cycles
     Route: 065
     Dates: start: 20111003, end: 20120430
  3. IRINOTECAN [Suspect]
     Dosage: 4 infusion
     Route: 065
     Dates: start: 20120806, end: 20121022
  4. FLUOROURACIL [Suspect]
     Indication: COLORECTAL CANCER
     Route: 065
     Dates: start: 20110301, end: 20110808
  5. FLUOROURACIL [Suspect]
     Route: 065
     Dates: start: 20111003, end: 20120430
  6. ERBITUX [Concomitant]
     Dosage: 4 infusion
     Route: 042
     Dates: start: 20120806, end: 20121022
  7. OXALIPLATIN [Concomitant]
     Dosage: 12 cycles
     Route: 065
     Dates: start: 20110301, end: 20110808
  8. LEUCOVORIN [Concomitant]
     Dosage: 12 cycles
     Route: 065
     Dates: start: 20110301, end: 20110808

REACTIONS (1)
  - Disease progression [Unknown]
